FAERS Safety Report 4498836-4 (Version None)
Quarter: 2004Q4

REPORT INFORMATION
  Report Type: 
  Country: None (occurrence: None)
  Receive Date: 20041108
  Receipt Date: 20041025
  Transmission Date: 20050328
  Serious: Yes (Death)
  Sender: FDA-Public Use
  Company Number: 2004-BP-10071MX

PATIENT
  Age: 84 Year
  Sex: Male

DRUGS (4)
  1. MOBICOX 15.0 MG TABLETS (MELOXICAM) (SU) [Suspect]
     Indication: BACK PAIN
     Dosage: 15 MG (15 MG, 1 SU O.D.) PR
     Route: 054
     Dates: start: 20040307, end: 20040409
  2. MOBICOX 15.0 MG TABLETS (MELOXICAM) (SU) [Suspect]
     Indication: RHEUMATOID ARTHRITIS
     Dosage: 15 MG (15 MG, 1 SU O.D.) PR
     Route: 054
     Dates: start: 20040307, end: 20040409
  3. SPIRIVA [Concomitant]
  4. LANTUS (INSULIN GLARGINE) (LO) [Concomitant]

REACTIONS (1)
  - PNEUMONIA [None]
